FAERS Safety Report 10793403 (Version 1)
Quarter: 2015Q1

REPORT INFORMATION
  Report Type: Spontaneous
  Country: US (occurrence: US)
  Receive Date: 20150213
  Receipt Date: 20150213
  Transmission Date: 20150721
  Serious: Yes (Hospitalization)
  Sender: FDA-Public Use
  Company Number: US-SA-2015SA015958

PATIENT
  Age: 65 Year
  Sex: Male

DRUGS (1)
  1. LEFLUNOMIDE. [Suspect]
     Active Substance: LEFLUNOMIDE
     Indication: RHEUMATOID ARTHRITIS
     Route: 065

REACTIONS (10)
  - Weight decreased [Recovering/Resolving]
  - Renal impairment [Unknown]
  - Computerised tomogram abnormal [Recovering/Resolving]
  - Asthenia [Recovering/Resolving]
  - Blood creatinine increased [Recovering/Resolving]
  - Anaemia [Recovering/Resolving]
  - Colitis [Recovering/Resolving]
  - Diarrhoea [Recovering/Resolving]
  - Acidosis [Recovering/Resolving]
  - Abscess intestinal [Recovering/Resolving]
